FAERS Safety Report 11046096 (Version 2)
Quarter: 2015Q2

REPORT INFORMATION
  Report Type: Spontaneous
  Country: US (occurrence: US)
  Receive Date: 20150418
  Receipt Date: 20150524
  Transmission Date: 20150821
  Serious: No
  Sender: FDA-Public Use
  Company Number: US-JNJFOC-20110508753

PATIENT
  Sex: Female
  Weight: 74.84 kg

DRUGS (3)
  1. NIZORAL [Suspect]
     Active Substance: KETOCONAZOLE
     Route: 061
  2. NIZORAL [Suspect]
     Active Substance: KETOCONAZOLE
     Indication: DRY SKIN
     Route: 061
  3. NIZORAL [Suspect]
     Active Substance: KETOCONAZOLE
     Indication: DRY SKIN
     Route: 061

REACTIONS (6)
  - Inappropriate schedule of drug administration [Unknown]
  - Drug ineffective [Not Recovered/Not Resolved]
  - Product formulation issue [Unknown]
  - Pruritus [Not Recovered/Not Resolved]
  - Product container seal issue [Unknown]
  - Dry skin [Not Recovered/Not Resolved]
